FAERS Safety Report 20802371 (Version 1)
Quarter: 2022Q2

REPORT INFORMATION
  Report Type: Spontaneous
  Country: US (occurrence: None)
  Receive Date: 20220507
  Receipt Date: 20220507
  Transmission Date: 20220721
  Serious: Yes (Hospitalization)
  Sender: FDA-Public Use
  Company Number: None

PATIENT
  Age: 48 Year
  Sex: Female
  Weight: 112 kg

DRUGS (2)
  1. DASATINIB [Suspect]
     Active Substance: DASATINIB
     Dates: end: 20211003
  2. METHOTREXATE [Suspect]
     Active Substance: METHOTREXATE
     Dates: end: 20210929

REACTIONS (8)
  - Respiratory failure [None]
  - Hypervolaemia [None]
  - Pulmonary congestion [None]
  - Pleural effusion [None]
  - Lung consolidation [None]
  - Pyrexia [None]
  - Nausea [None]
  - Oxygen saturation decreased [None]

NARRATIVE: CASE EVENT DATE: 20211003
